FAERS Safety Report 12489481 (Version 1)
Quarter: 2016Q2

REPORT INFORMATION
  Report Type: Spontaneous
  Country: RO (occurrence: RO)
  Receive Date: 20160622
  Receipt Date: 20160622
  Transmission Date: 20160815
  Serious: Yes (Other)
  Sender: FDA-Public Use
  Company Number: RO-B.I. PHARMACEUTICALS,INC./RIDGEFIELD-2016-BI-38929RN

PATIENT
  Age: 58 Year
  Sex: Female

DRUGS (2)
  1. SINTROM [Concomitant]
     Active Substance: ACENOCOUMAROL
     Indication: PRODUCT USED FOR UNKNOWN INDICATION
     Route: 048
     Dates: start: 2011, end: 20160114
  2. PRADAXA [Suspect]
     Active Substance: DABIGATRAN ETEXILATE MESYLATE
     Indication: ATRIAL FIBRILLATION
     Dosage: 300 MG
     Route: 048
     Dates: start: 20160114, end: 20160214

REACTIONS (1)
  - Coronary artery thrombosis [Unknown]

NARRATIVE: CASE EVENT DATE: 20160214
